FAERS Safety Report 18147076 (Version 1)
Quarter: 2020Q3

REPORT INFORMATION
  Report Type: Spontaneous
  Country: US (occurrence: US)
  Receive Date: 20200813
  Receipt Date: 20200813
  Transmission Date: 20201103
  Serious: No
  Sender: FDA-Public Use
  Company Number: US-MAYNE PHARMA-2020MYN000308

PATIENT
  Sex: Male

DRUGS (1)
  1. CLONIDINE. [Suspect]
     Active Substance: CLONIDINE
     Indication: DYSKINESIA
     Dosage: 0.4 MG, QWEEK
     Route: 061
     Dates: start: 201908

REACTIONS (5)
  - Application site erythema [Unknown]
  - Product use in unapproved indication [Unknown]
  - Application site irritation [Unknown]
  - Application site pain [Unknown]
  - Application site pruritus [Unknown]

NARRATIVE: CASE EVENT DATE: 201908
